FAERS Safety Report 9160727 (Version 1)
Quarter: 2013Q1

REPORT INFORMATION
  Report Type: Spontaneous
  Country: US (occurrence: US)
  Receive Date: 20130313
  Receipt Date: 20130313
  Transmission Date: 20140127
  Serious: No
  Sender: FDA-Public Use
  Company Number: US-ASTRAZENECA-2013SE13598

PATIENT
  Sex: Female

DRUGS (4)
  1. LISINOPRIL [Suspect]
     Indication: HYPERTENSION
     Route: 048
  2. SYMBICORT [Suspect]
     Indication: COUGH
     Route: 055
     Dates: start: 20130226
  3. METFORMIN [Concomitant]
     Indication: DIABETES MELLITUS
     Dosage: DAILY AT 5 PM
     Route: 048
  4. BLOOD PRESSURE MEDICATION [Concomitant]
     Indication: HYPERTENSION

REACTIONS (4)
  - Blood glucose increased [Unknown]
  - Tachyarrhythmia [Unknown]
  - Asthma [Unknown]
  - Off label use [Unknown]
